FAERS Safety Report 5321668-1 (Version None)
Quarter: 2007Q2

REPORT INFORMATION
  Report Type: 
  Country: None (occurrence: None)
  Receive Date: 20070220
  Receipt Date: 20061114
  Transmission Date: 20071010
  Serious: No
  Sender: FDA-Public Use
  Company Number: TPA2006A02044

PATIENT
  Age: 52 Year
  Sex: Male
  Weight: 96.1626 kg

DRUGS (6)
  1. ROZEREM [Suspect]
     Indication: INSOMNIA
     Dosage: 8 MG, HS, PER ORAL
     Route: 048
     Dates: start: 20061110, end: 20061112
  2. LISINOPRIL [Concomitant]
  3. MS CONTIN [Concomitant]
  4. CYMBALTA [Concomitant]
  5. ASPIRIN [Concomitant]
  6. LAMISIL [Concomitant]

REACTIONS (6)
  - FEELING JITTERY [None]
  - HYPOAESTHESIA [None]
  - INITIAL INSOMNIA [None]
  - INSOMNIA [None]
  - MUSCLE TWITCHING [None]
  - NERVOUSNESS [None]
